FAERS Safety Report 8076779-7 (Version None)
Quarter: 2011Q4

REPORT INFORMATION
  Report Type: 
  Country: None (occurrence: None)
  Receive Date: 20111221
  Receipt Date: 20110309
  Transmission Date: 20120403
  Serious: Yes (Other)
  Sender: FDA-Public Use
  Company Number: PHHY2011US14820

PATIENT
  Age: 45 Year
  Sex: Female
  Weight: 29.4838 kg

DRUGS (10)
  1. NEUPOGEN [Concomitant]
  2. COLACE (DOCUSATE SODIUM) [Concomitant]
  3. ACYCLOVIR [Concomitant]
  4. EXJADE [Suspect]
     Indication: ACUTE LYMPHOCYTIC LEUKAEMIA
     Dosage: 2000 MG DAILY, ORAL
     Route: 048
     Dates: start: 20110120, end: 20110307
  5. MERCAPTOPURINE [Concomitant]
  6. VICODIN [Concomitant]
  7. VINCRISTINE [Concomitant]
  8. SENOKOT (SENNA ALEXANDRINA FRUIT) [Concomitant]
  9. METHOTREXATE [Concomitant]
  10. LEVAQUIN [Concomitant]

REACTIONS (1)
  - WHITE BLOOD CELL COUNT DECREASED [None]
